FAERS Safety Report 17947569 (Version 1)
Quarter: 2020Q2

REPORT INFORMATION
  Report Type: Spontaneous
  Country: US (occurrence: US)
  Receive Date: 20200624
  Receipt Date: 20200624
  Transmission Date: 20200714
  Serious: Yes (Hospitalization)
  Sender: FDA-Public Use
  Company Number: None

PATIENT
  Sex: Female
  Weight: 95.5 kg

DRUGS (2)
  1. IBRANCE [Suspect]
     Active Substance: PALBOCICLIB
  2. ASPIRIN (27223) [Suspect]
     Active Substance: ASPIRIN

REACTIONS (8)
  - Malignant pleural effusion [None]
  - Tachycardia [None]
  - Pancytopenia [None]
  - Abdominal pain [None]
  - Acute kidney injury [None]
  - Constipation [None]
  - Ureterolithiasis [None]
  - Hydronephrosis [None]

NARRATIVE: CASE EVENT DATE: 20200614
